FAERS Safety Report 6998718-X (Version None)
Quarter: 2010Q3

REPORT INFORMATION
  Report Type: 
  Country: None (occurrence: None)
  Receive Date: 20100920
  Receipt Date: 20100119
  Transmission Date: 20110219
  Serious: No
  Sender: FDA-Public Use
  Company Number: US-ASTRAZENECA-2010SE02425

PATIENT
  Sex: Male
  Weight: 86.2 kg

DRUGS (4)
  1. SEROQUEL XR [Suspect]
     Indication: MOOD SWINGS
     Route: 048
     Dates: start: 20091201, end: 20100101
  2. SEROQUEL XR [Suspect]
     Route: 048
     Dates: start: 20091201, end: 20100101
  3. EFFEXOR XR [Concomitant]
     Indication: DEPRESSION
     Route: 048
  4. NEURONTIN [Concomitant]
     Indication: ANXIETY
     Route: 048

REACTIONS (2)
  - SLEEP DISORDER [None]
  - SOMNOLENCE [None]
